FAERS Safety Report 8984052 (Version 1)
Quarter: 2012Q4

REPORT INFORMATION
  Report Type: Spontaneous
  Country: US (occurrence: None)
  Receive Date: 20121214
  Receipt Date: 20121214
  Transmission Date: 20130627
  Serious: Yes (Other)
  Sender: FDA-Public Use
  Company Number: 2009003176

PATIENT
  Age: 80 Year
  Sex: Female
  Weight: 68 kg

DRUGS (3)
  1. TARCEVA (ERLOTINIB HYDROCHLORIDE) TABLET [Suspect]
     Indication: NON-SMALL CELL LUNG CANCER
     Dosage: 150 mg, uid/qd, oral
     Route: 048
     Dates: start: 200904
  2. LISINOPRIL (LISINOPRIL) [Concomitant]
  3. COUMADIN /00014802/ (WARFARIN SODIUM) [Concomitant]

REACTIONS (4)
  - Eyelid pain [None]
  - Scab [None]
  - Skin burning sensation [None]
  - Rash [None]
